FAERS Safety Report 9998214 (Version 1)
Quarter: 2014Q1

REPORT INFORMATION
  Report Type: Spontaneous
  Country: GB (occurrence: GB)
  Receive Date: 20140311
  Receipt Date: 20140311
  Transmission Date: 20141002
  Serious: Yes (Other)
  Sender: FDA-Public Use
  Company Number: GB-MYLANLABS-2014S1004635

PATIENT
  Age: 46 Year
  Sex: Female
  Weight: 120.65 kg

DRUGS (3)
  1. MIRTAZAPINE [Suspect]
     Indication: DEPRESSION
     Route: 048
     Dates: start: 20140101
  2. LANSOPRAZOLE [Concomitant]
  3. NASONEX [Concomitant]

REACTIONS (5)
  - Blepharospasm [Not Recovered/Not Resolved]
  - Aggression [Not Recovered/Not Resolved]
  - Anger [Unknown]
  - Violence-related symptom [Not Recovered/Not Resolved]
  - Suicidal ideation [Unknown]
